FAERS Safety Report 18491881 (Version 1)
Quarter: 2020Q4

REPORT INFORMATION
  Report Type: Spontaneous
  Country: US (occurrence: US)
  Receive Date: 20201111
  Receipt Date: 20201111
  Transmission Date: 20210114
  Serious: Yes (Hospitalization, Other)
  Sender: FDA-Public Use
  Company Number: US-PURDUE-USA-2020-0175938

PATIENT

DRUGS (2)
  1. OXYCODONE HCL CR TABLETS (SIMILAR TO NDA 22-272) [Suspect]
     Active Substance: OXYCODONE HYDROCHLORIDE
     Indication: PAIN
     Dosage: 80 MG, UNK
     Route: 048
     Dates: start: 2012, end: 2017
  2. HYDROCODONE BITARTRATE AND ACETAMINOPHEN [Suspect]
     Active Substance: ACETAMINOPHEN\HYDROCODONE BITARTRATE
     Indication: PAIN
     Dosage: 10-325 MG
     Route: 048
     Dates: start: 2012, end: 2017

REACTIONS (7)
  - Drug dependence [Unknown]
  - Loss of consciousness [Recovered/Resolved]
  - Tooth loss [Unknown]
  - Disturbance in attention [Unknown]
  - Amnesia [Unknown]
  - Fall [Recovered/Resolved]
  - Sleep disorder [Recovered/Resolved]
